FAERS Safety Report 6634855-7 (Version None)
Quarter: 2010Q1

REPORT INFORMATION
  Report Type: 
  Country: None (occurrence: None)
  Receive Date: 20100315
  Receipt Date: 20100305
  Transmission Date: 20100710
  Serious: Yes (Life-Threatening, Hospitalization)
  Sender: FDA-Public Use
  Company Number: US-PFIZER INC-2010028969

PATIENT
  Sex: Female

DRUGS (2)
  1. XALATAN [Suspect]
     Dosage: UNK
  2. QUININE [Suspect]
     Dosage: UNK

REACTIONS (1)
  - BLOOD PRESSURE DECREASED [None]
